FAERS Safety Report 4294474-7 (Version None)
Quarter: 2004Q1

REPORT INFORMATION
  Report Type: 
  Country: None (occurrence: None)
  Receive Date: 20040211
  Receipt Date: 20040130
  Transmission Date: 20041129
  Serious: Yes (Other)
  Sender: FDA-Public Use
  Company Number: US-JNJFOC-20031100163

PATIENT
  Age: 56 Year
  Sex: Female
  Weight: 68.0396 kg

DRUGS (5)
  1. REMICADE [Suspect]
     Indication: RHEUMATOID ARTHRITIS
     Dosage: 200 MG; INTRAVENOUS
     Route: 042
     Dates: start: 20031008
  2. REMICADE [Suspect]
     Indication: RHEUMATOID ARTHRITIS
     Dosage: 200 MG; INTRAVENOUS
     Route: 042
     Dates: start: 20031022
  3. ARAVA [Concomitant]
  4. EVISTA (RALOXIFENE HYDROCHLORICE) [Concomitant]
  5. EVOXAC [Concomitant]

REACTIONS (3)
  - BLISTER [None]
  - FOLLICULITIS [None]
  - RASH PAPULAR [None]
